FAERS Safety Report 5608403-4 (Version None)
Quarter: 2008Q1

REPORT INFORMATION
  Report Type: 
  Country: None (occurrence: None)
  Receive Date: 20080125
  Receipt Date: 20080121
  Transmission Date: 20080703
  Serious: Yes (Death, Other)
  Sender: FDA-Public Use
  Company Number: ADR0102008

PATIENT
  Age: 48 Year
  Sex: Male

DRUGS (4)
  1. SERTRALINE [Suspect]
     Dosage: ORAL
  2. ACETAMINOPHEN [Concomitant]
  3. CODEINE SUL TAB [Concomitant]
  4. LORAZEPAM [Concomitant]

REACTIONS (2)
  - DRUG TOXICITY [None]
  - TOXICOLOGIC TEST ABNORMAL [None]
